FAERS Safety Report 16186240 (Version 1)
Quarter: 2019Q2

REPORT INFORMATION
  Report Type: Spontaneous
  Country: BR (occurrence: BR)
  Receive Date: 20190411
  Receipt Date: 20190411
  Transmission Date: 20190711
  Serious: Yes (Other)
  Sender: FDA-Public Use
  Company Number: BR-SA-2018SA337951

PATIENT
  Sex: Female
  Weight: 69 kg

DRUGS (1)
  1. LANTUS [Suspect]
     Active Substance: INSULIN GLARGINE
     Indication: TYPE 2 DIABETES MELLITUS
     Dosage: 26 IU, UNK
     Dates: start: 2013

REACTIONS (5)
  - Palpitations [Unknown]
  - Hyperhidrosis [Unknown]
  - Hypoglycaemia [Recovered/Resolved]
  - Syncope [Unknown]
  - Weight increased [Unknown]
